FAERS Safety Report 7393794-7 (Version None)
Quarter: 2011Q2

REPORT INFORMATION
  Report Type: 
  Country: None (occurrence: None)
  Receive Date: 20110405
  Receipt Date: 20110328
  Transmission Date: 20111010
  Serious: Yes (Other)
  Sender: FDA-Public Use
  Company Number: FR-ELI_LILLY_AND_COMPANY-FR201103008044

PATIENT
  Sex: Female

DRUGS (6)
  1. PROZAC [Suspect]
     Dosage: 20 MG, QD
     Route: 065
  2. FLIXOTIDE [Concomitant]
  3. LEVOTHYROX [Concomitant]
  4. ZYPREXA [Suspect]
     Dosage: 10 MG, EACH MORNING
     Route: 065
  5. TERCIAN [Concomitant]
     Dosage: 30 DF, QD
  6. XANAX [Concomitant]
     Dosage: 0.5 MG, EVERY 3 HRS

REACTIONS (2)
  - ABORTION SPONTANEOUS [None]
  - DRUG EXPOSURE DURING PREGNANCY [None]
